FAERS Safety Report 8590191-3 (Version None)
Quarter: 2012Q3

REPORT INFORMATION
  Report Type: 
  Country: None (occurrence: None)
  Receive Date: 20120813
  Receipt Date: 19931101
  Transmission Date: 20120928
  Serious: Yes (Hospitalization)
  Sender: FDA-Public Use
  Company Number: US-ROCHE-1100518

PATIENT
  Age: 49 Year
  Sex: Male

DRUGS (3)
  1. NITROGLYCERIN [Concomitant]
  2. ASPIRIN [Concomitant]
  3. ACTIVASE [Suspect]
     Indication: ACUTE MYOCARDIAL INFARCTION
     Dates: start: 19930626

REACTIONS (1)
  - PAIN [None]
